FAERS Safety Report 10053303 (Version 2)
Quarter: 2014Q2

REPORT INFORMATION
  Report Type: Report from Study
  Country: US (occurrence: US)
  Receive Date: 20140402
  Receipt Date: 20140521
  Transmission Date: 20141212
  Serious: Yes (Hospitalization)
  Sender: FDA-Public Use
  Company Number: PHEH2014US006220

PATIENT
  Sex: Female
  Weight: 89 kg

DRUGS (2)
  1. TOBRAMYCIN [Suspect]
     Dosage: UNK
     Route: 055
  2. TOBI PODHALER [Suspect]
     Indication: PSEUDOMONAS INFECTION
     Dosage: 4 DF, BID (4 CAPSULE) TWICE DAILY
     Route: 055

REACTIONS (5)
  - Pseudomonas infection [Unknown]
  - Cough [Unknown]
  - Pyrexia [Unknown]
  - Bacterial infection [Unknown]
  - Weight decreased [Unknown]
